FAERS Safety Report 8444048-9 (Version None)
Quarter: 2012Q2

REPORT INFORMATION
  Report Type: 
  Country: None (occurrence: None)
  Receive Date: 20120618
  Receipt Date: 20120614
  Transmission Date: 20120825
  Serious: Yes (Hospitalization)
  Sender: FDA-Public Use
  Company Number: US-BAYER-2012-059441

PATIENT
  Age: 54 Year
  Sex: Female

DRUGS (4)
  1. BETASERON [Suspect]
     Dosage: 0.25 MG, QOD
     Route: 058
  2. VYTORIN [Concomitant]
     Dosage: 10/40 MG
  3. IBUPROFEN (ADVIL) [Concomitant]
     Dosage: 200 MG, UNK
  4. AMLODIPINE BESYLATE [Concomitant]
     Dosage: 5 MG, UNK

REACTIONS (3)
  - INFLUENZA [None]
  - INJECTION SITE ULCER [None]
  - HOSPITALISATION [None]
